FAERS Safety Report 6130332-0 (Version None)
Quarter: 2009Q1

REPORT INFORMATION
  Report Type: 
  Country: None (occurrence: None)
  Receive Date: 20090324
  Receipt Date: 20090320
  Transmission Date: 20090719
  Serious: Yes (Other)
  Sender: FDA-Public Use
  Company Number: US-ROXANE LABORATORIES, INC.-2009-RO-00266RO

PATIENT
  Age: 42 Year
  Sex: Male

DRUGS (9)
  1. METHADONE HCL [Suspect]
     Indication: HEADACHE
     Dosage: 15MG
  2. DIAZEPAM [Suspect]
  3. ALPRAZOLAM [Suspect]
  4. TRIPTAN [Suspect]
     Indication: HEADACHE
     Route: 048
  5. NAPROXEN SODIUM [Suspect]
     Indication: HEADACHE
  6. SUMATRIPTAN [Suspect]
     Indication: HEADACHE
  7. ALCOHOL [Suspect]
  8. HYDROCODONE BITARTRATE [Suspect]
  9. OXYCODONE HCL [Suspect]

REACTIONS (4)
  - BLOOD ALCOHOL INCREASED [None]
  - INJURY [None]
  - ROAD TRAFFIC ACCIDENT [None]
  - TOXICOLOGIC TEST ABNORMAL [None]
